FAERS Safety Report 6932991-9 (Version None)
Quarter: 2010Q3

REPORT INFORMATION
  Report Type: 
  Country: None (occurrence: None)
  Receive Date: 20100818
  Receipt Date: 20100818
  Transmission Date: 20110219
  Serious: No
  Sender: FDA-Public Use
  Company Number: None

PATIENT
  Age: 50 Year
  Sex: Male

DRUGS (8)
  1. AUGMENTIN '125' [Suspect]
     Dates: start: 20060219, end: 20060223
  2. NEXIUM [Concomitant]
  3. PROPRANOLOL [Concomitant]
  4. CLONAZEPAM [Concomitant]
  5. LASIX [Concomitant]
  6. ALDACTONE [Concomitant]
  7. LACTULOSE [Concomitant]
  8. MOXIFLOXACIN [Concomitant]

REACTIONS (8)
  - ABDOMINAL PAIN [None]
  - ALANINE AMINOTRANSFERASE INCREASED [None]
  - ASPARTATE AMINOTRANSFERASE INCREASED [None]
  - BLOOD ALKALINE PHOSPHATASE INCREASED [None]
  - BLOOD BILIRUBIN INCREASED [None]
  - CHROMATURIA [None]
  - LIVER DISORDER [None]
  - NAUSEA [None]
